FAERS Safety Report 13538353 (Version 2)
Quarter: 2017Q2

REPORT INFORMATION
  Report Type: Spontaneous
  Country: US (occurrence: US)
  Receive Date: 20170512
  Receipt Date: 20170526
  Transmission Date: 20170830
  Serious: Yes (Death, Hospitalization, Other)
  Sender: FDA-Public Use
  Company Number: US-APOTEX-2017AP012060

PATIENT
  Age: 75 Year
  Sex: Female

DRUGS (3)
  1. TAMOXIFEN CITRATE TABLETS USP [Suspect]
     Active Substance: TAMOXIFEN CITRATE
     Indication: OESTROGEN RECEPTOR POSITIVE BREAST CANCER
     Dosage: UNK
     Route: 065
  2. RALOXIFENE. [Suspect]
     Active Substance: RALOXIFENE
     Indication: OESTROGEN RECEPTOR POSITIVE BREAST CANCER
     Route: 065
  3. LETROZOLE. [Suspect]
     Active Substance: LETROZOLE
     Indication: OESTROGEN RECEPTOR POSITIVE BREAST CANCER
     Route: 065

REACTIONS (1)
  - Aortic aneurysm [Fatal]
